FAERS Safety Report 5088382-1 (Version None)
Quarter: 2006Q3

REPORT INFORMATION
  Report Type: 
  Country: None (occurrence: None)
  Receive Date: 20060822
  Receipt Date: 20060725
  Transmission Date: 20061208
  Serious: Yes (Hospitalization, Other)
  Sender: FDA-Public Use
  Company Number: 2006099022

PATIENT
  Age: 17 Year
  Sex: Female

DRUGS (1)
  1. DEPO-PROVERA [Suspect]
     Indication: CONTRACEPTION
     Dosage: SINGLE INJECTION, INTRAMUSCULAR
     Route: 030
     Dates: start: 20060119, end: 20060119

REACTIONS (5)
  - PREGNANCY WITH INJECTABLE CONTRACEPTIVE [None]
  - SECRETION DISCHARGE [None]
  - SUBCUTANEOUS ABSCESS [None]
  - ULCER [None]
  - WOUND INFECTION STAPHYLOCOCCAL [None]
